FAERS Safety Report 8217057-2 (Version None)
Quarter: 2012Q1

REPORT INFORMATION
  Report Type: 
  Country: None (occurrence: None)
  Receive Date: 20120314
  Receipt Date: 20120228
  Transmission Date: 20120608
  Serious: Yes (Hospitalization)
  Sender: FDA-Public Use
  Company Number: 002884

PATIENT
  Age: 83 Year
  Sex: Male
  Weight: 60 kg

DRUGS (12)
  1. BRONUCK (BROMFENAC SODIUM) [Concomitant]
  2. BETAMETHASONE [Concomitant]
  3. CHLORMADINONE ACETATE TAB [Concomitant]
  4. METFORMIN HCL [Concomitant]
  5. GLYBURIDE [Concomitant]
  6. PEGAPTANIB SODIUM (PEGAPTANIB SODIUM) UNKNOWN [Suspect]
     Indication: CHOROIDAL NEOVASCULARISATION
     Dosage: 0.3 MG, SINGLE, IN THE RIGHT EYE, INTRAOCULAR
     Route: 031
     Dates: start: 20090825, end: 20090825
  7. PEGAPTANIB SODIUM (PEGAPTANIB SODIUM) UNKNOWN [Suspect]
     Indication: AGE-RELATED MACULAR DEGENERATION
     Dosage: 0.3 MG, SINGLE, IN THE RIGHT EYE, INTRAOCULAR
     Route: 031
     Dates: start: 20090825, end: 20090825
  8. TAMSULOSIN HYDROCHLORIDE [Concomitant]
  9. LEVOFLOXACIN [Concomitant]
  10. XYLOCAINE [Concomitant]
  11. LIPIDIL [Concomitant]
  12. LEVOFLOXACIN [Concomitant]

REACTIONS (2)
  - CEREBRAL THROMBOSIS [None]
  - BLOOD PRESSURE INCREASED [None]
